FAERS Safety Report 13078497 (Version 2)
Quarter: 2017Q1

REPORT INFORMATION
  Report Type: Report from Study
  Country: JP (occurrence: JP)
  Receive Date: 20170102
  Receipt Date: 20170209
  Transmission Date: 20170428
  Serious: Yes (Death, Other)
  Sender: FDA-Public Use
  Company Number: JP-UCBSA-2016050141

PATIENT
  Age: 49 Year
  Sex: Male
  Weight: 65 kg

DRUGS (5)
  1. GLYCEOL [Concomitant]
     Active Substance: GLYCERIN
     Indication: PRODUCT USED FOR UNKNOWN INDICATION
     Dosage: 200 ML, ONCE DAILY (QD)
     Route: 042
     Dates: start: 20160918, end: 20160927
  2. LEVETIRACETAM. [Suspect]
     Active Substance: LEVETIRACETAM
     Indication: PARTIAL SEIZURES WITH SECONDARY GENERALISATION
     Dosage: 500 MG, 2X/DAY (BID)
     Route: 041
     Dates: start: 20160917, end: 20160918
  3. E KEPPRA [Suspect]
     Active Substance: LEVETIRACETAM
     Indication: PARTIAL SEIZURES WITH SECONDARY GENERALISATION
     Dosage: 500 MG, 2X/DAY (BID)
     Route: 048
     Dates: start: 20160918
  4. RAVONAL [Suspect]
     Active Substance: THIOPENTAL
     Indication: PRODUCT USED FOR UNKNOWN INDICATION
     Dosage: 1500 MG DAILY
     Route: 042
     Dates: start: 20160917, end: 20160924
  5. MUCOSTA [Concomitant]
     Active Substance: REBAMIPIDE
     Indication: PRODUCT USED FOR UNKNOWN INDICATION
     Dosage: 0.5 G, 3X/DAY (TID)
     Route: 048
     Dates: start: 20160918, end: 20160925

REACTIONS (4)
  - Renal impairment [Not Recovered/Not Resolved]
  - Subdural haematoma [Fatal]
  - Brain neoplasm [Fatal]
  - Hepatic function abnormal [Not Recovered/Not Resolved]

NARRATIVE: CASE EVENT DATE: 201609
